FAERS Safety Report 10683333 (Version 2)
Quarter: 2015Q1

REPORT INFORMATION
  Report Type: Spontaneous
  Country: US (occurrence: US)
  Receive Date: 20141230
  Receipt Date: 20150211
  Transmission Date: 20150720
  Serious: Yes (Other)
  Sender: FDA-Public Use
  Company Number: US-GLAXOSMITHKLINE INC.-US2014GSK040778

PATIENT
  Sex: Female
  Weight: 95.24 kg

DRUGS (3)
  1. VIMPAT [Concomitant]
     Active Substance: LACOSAMIDE
  2. ZONEGRAN [Concomitant]
     Active Substance: ZONISAMIDE
  3. POTIGA [Suspect]
     Active Substance: EZOGABINE
     Indication: SEIZURE
     Dosage: 200 MG, TID
     Route: 048
     Dates: start: 20120613

REACTIONS (5)
  - Seizure [Not Recovered/Not Resolved]
  - Thinking abnormal [Not Recovered/Not Resolved]
  - Loss of consciousness [Not Recovered/Not Resolved]
  - Adverse event [Unknown]
  - Drug ineffective [Not Recovered/Not Resolved]
